FAERS Safety Report 14943895 (Version 3)
Quarter: 2018Q4

REPORT INFORMATION
  Report Type: Spontaneous
  Country: JP (occurrence: JP)
  Receive Date: 20180528
  Receipt Date: 20181214
  Transmission Date: 20190204
  Serious: Yes (Hospitalization)
  Sender: FDA-Public Use
  Company Number: JP-ASTRAZENECA-2018SE68856

PATIENT
  Age: 69 Year
  Sex: Male
  Weight: 78 kg

DRUGS (24)
  1. AMLODIPINE [Concomitant]
     Active Substance: AMLODIPINE BESYLATE
     Indication: HYPERTENSION
     Route: 048
     Dates: start: 20150416
  2. FASENRA [Suspect]
     Active Substance: BENRALIZUMAB
     Indication: ASTHMA
     Dosage: 30.0MG UNKNOWN
     Route: 058
     Dates: start: 20180510, end: 20180510
  3. PREDONINE [Concomitant]
     Active Substance: PREDNISOLONE
     Indication: ASTHMA
     Route: 048
     Dates: start: 20180514, end: 20180520
  4. PREDONINE [Concomitant]
     Active Substance: PREDNISOLONE
     Indication: ASTHMA
     Route: 048
     Dates: start: 20180627, end: 20180717
  5. HUMALOG [Concomitant]
     Active Substance: INSULIN LISPRO
     Indication: DIABETES MELLITUS
     Route: 058
     Dates: start: 20180214
  6. THEOPHYLLINE [Concomitant]
     Active Substance: THEOPHYLLINE ANHYDROUS
     Indication: ASTHMA
     Dosage: DOSE UNKNOWN
     Route: 065
  7. PREDONINE [Concomitant]
     Active Substance: PREDNISOLONE
     Indication: ASTHMA
     Route: 048
     Dates: start: 20180521, end: 20180626
  8. AZILVA [Concomitant]
     Active Substance: AZILSARTAN KAMEDOXOMIL
     Indication: HYPERTENSION
     Route: 048
     Dates: start: 20150416
  9. SPIRIVA [Concomitant]
     Active Substance: TIOTROPIUM BROMIDE MONOHYDRATE
     Indication: CHRONIC OBSTRUCTIVE PULMONARY DISEASE
     Route: 055
     Dates: start: 20101209
  10. SYMBICORT [Concomitant]
     Active Substance: BUDESONIDE\FORMOTEROL FUMARATE DIHYDRATE
     Indication: ASTHMA
     Dosage: 2 DF, TWO TIMES A DAY
     Route: 055
  11. MONTELUKAST [Concomitant]
     Active Substance: MONTELUKAST SODIUM
     Indication: ASTHMA
     Dosage: DOSE UNKNOWN
     Route: 065
  12. TIOTROPIUM BROMIDE HYDRATE [Concomitant]
     Indication: ASTHMA
     Dosage: DOSE UNKNOWN
     Route: 065
     Dates: start: 2010
  13. PREDONINE [Concomitant]
     Active Substance: PREDNISOLONE
     Indication: ASTHMA
     Route: 048
     Dates: start: 20180822
  14. CARBOCISTEINE [Concomitant]
     Active Substance: CARBOCYSTEINE
     Indication: ASTHMA
     Route: 048
     Dates: start: 20151210
  15. BISOLVON [Concomitant]
     Active Substance: BROMHEXINE HYDROCHLORIDE
     Indication: ASTHMA
     Route: 048
     Dates: start: 20151210
  16. FLUTICASONE. [Concomitant]
     Active Substance: FLUTICASONE
     Indication: ASTHMA
  17. CICLESONIDE [Concomitant]
     Active Substance: CICLESONIDE
     Indication: ASTHMA
     Dosage: DOSE UNKNOWN
     Route: 055
  18. SALMETEROL XINAFOATE [Concomitant]
     Active Substance: SALMETEROL XINAFOATE
     Indication: ASTHMA
     Dosage: DOSE UNKNOWN
     Route: 055
  19. CODEINE PHOSPHATE HYDRATE [Concomitant]
     Active Substance: CODEINE PHOSPHATE
     Indication: ASTHMA
     Route: 048
     Dates: start: 20170510
  20. SYMBICORT [Concomitant]
     Active Substance: BUDESONIDE\FORMOTEROL FUMARATE DIHYDRATE
     Indication: ASTHMA
  21. LANTUS [Concomitant]
     Active Substance: INSULIN GLARGINE
     Indication: DIABETES MELLITUS
     Route: 058
     Dates: start: 20180214
  22. THEO-DUR [Concomitant]
     Active Substance: THEOPHYLLINE ANHYDROUS
     Indication: ASTHMA
     Route: 048
  23. PREDONINE [Concomitant]
     Active Substance: PREDNISOLONE
     Indication: ASTHMA
     Route: 048
     Dates: start: 20180504, end: 20180513
  24. PREDONINE [Concomitant]
     Active Substance: PREDNISOLONE
     Indication: ASTHMA
     Route: 048
     Dates: start: 20180718, end: 20180821

REACTIONS (1)
  - Pneumonia [Recovering/Resolving]

NARRATIVE: CASE EVENT DATE: 20180514
